FAERS Safety Report 8068029-2 (Version None)
Quarter: 2012Q1

REPORT INFORMATION
  Report Type: 
  Country: None (occurrence: None)
  Receive Date: 20120124
  Receipt Date: 20110908
  Transmission Date: 20120608
  Serious: No
  Sender: FDA-Public Use
  Company Number: US-AMGEN-USASP2011046159

PATIENT
  Age: 70 Year
  Sex: Female

DRUGS (11)
  1. NORTRIPTYLINE HCL [Concomitant]
     Dosage: 1 UNK, UNK
  2. LISINOPRIL [Concomitant]
  3. MAGNESIUM SULFATE [Concomitant]
  4. ATENOLOL [Concomitant]
  5. FISH OIL [Concomitant]
  6. VYTORIN [Concomitant]
  7. PROLIA [Suspect]
     Indication: OSTEOPOROSIS POSTMENOPAUSAL
     Dosage: 60 MG, Q6MO
     Dates: start: 20100101
  8. FUROSEMIDE [Concomitant]
  9. PLAVIX [Concomitant]
  10. CALCIUM WITH VITAMIN D [Concomitant]
  11. MULTI-VITAMIN [Concomitant]

REACTIONS (1)
  - BONE DISORDER [None]
